FAERS Safety Report 4975681-4 (Version None)
Quarter: 2006Q2

REPORT INFORMATION
  Report Type: 
  Country: None (occurrence: None)
  Receive Date: 20060411
  Receipt Date: 20060331
  Transmission Date: 20061013
  Serious: Yes (Other)
  Sender: FDA-Public Use
  Company Number: SUS1-2006-00358

PATIENT
  Sex: Female

DRUGS (1)
  1. ADDERALL 10 [Suspect]
     Indication: ATTENTION DEFICIT/HYPERACTIVITY DISORDER

REACTIONS (5)
  - BLOOD PRESSURE INCREASED [None]
  - OFF LABEL USE [None]
  - PARAESTHESIA [None]
  - SCLERITIS [None]
  - VASCULITIS [None]
